FAERS Safety Report 9372454 (Version 1)
Quarter: 2013Q2

REPORT INFORMATION
  Report Type: Spontaneous
  Country: US (occurrence: None)
  Receive Date: 20130613
  Receipt Date: 20130613
  Transmission Date: 20140414
  Serious: Yes (Other)
  Sender: FDA-Public Use
  Company Number: 2013PROUSA02863

PATIENT
  Age: 69 Year
  Sex: Male
  Weight: 89.3 kg

DRUGS (1)
  1. PROVENGE [Suspect]
     Indication: PROSTATE CANCER
     Route: 042
     Dates: start: 20130506, end: 20130506

REACTIONS (4)
  - Malignant neoplasm progression [None]
  - Oedema [None]
  - Lymphadenopathy [None]
  - Prostate cancer metastatic [None]
